FAERS Safety Report 15861040 (Version 2)
Quarter: 2019Q1

REPORT INFORMATION
  Report Type: Spontaneous
  Country: US (occurrence: US)
  Receive Date: 20190124
  Receipt Date: 20190129
  Transmission Date: 20190417
  Serious: Yes (Hospitalization)
  Sender: FDA-Public Use
  Company Number: US-ROCHE-2249681

PATIENT
  Age: 54 Year
  Sex: Female

DRUGS (2)
  1. OCREVUS [Suspect]
     Active Substance: OCRELIZUMAB
     Indication: MULTIPLE SCLEROSIS
     Dosage: 1ST DOSE RECEIVED.
     Route: 065
     Dates: start: 201801
  2. OCREVUS [Suspect]
     Active Substance: OCRELIZUMAB
     Route: 065
     Dates: start: 20180801

REACTIONS (5)
  - Pulmonary embolism [Unknown]
  - Urinary tract infection [Unknown]
  - Cystitis [Unknown]
  - Ventricular dysfunction [Unknown]
  - Deep vein thrombosis [Unknown]

NARRATIVE: CASE EVENT DATE: 20181020
